FAERS Safety Report 23451874 (Version 1)
Quarter: 2024Q1

REPORT INFORMATION
  Report Type: Spontaneous
  Country: US (occurrence: US)
  Receive Date: 20240129
  Receipt Date: 20240129
  Transmission Date: 20240409
  Serious: No
  Sender: FDA-Public Use
  Company Number: US-SA-SAC20240125000099

PATIENT
  Sex: Female
  Weight: 83.46 kg

DRUGS (1)
  1. DUPIXENT [Suspect]
     Active Substance: DUPILUMAB
     Indication: Dermatitis atopic
     Dosage: 300 MG, QOW
     Route: 058

REACTIONS (5)
  - Influenza [Unknown]
  - Nasal congestion [Recovering/Resolving]
  - Pyrexia [Unknown]
  - Discomfort [Unknown]
  - Nasopharyngitis [Unknown]
